FAERS Safety Report 19917960 (Version 1)
Quarter: 2021Q4

REPORT INFORMATION
  Report Type: Spontaneous
  Country: AR (occurrence: AR)
  Receive Date: 20211005
  Receipt Date: 20211005
  Transmission Date: 20220303
  Serious: Yes (Hospitalization)
  Sender: FDA-Public Use
  Company Number: AR-STRIDES ARCOLAB LIMITED-2021SP028304

PATIENT
  Age: 4 Decade
  Sex: Female

DRUGS (4)
  1. ZOLPIDEM [Suspect]
     Active Substance: ZOLPIDEM TARTRATE
     Indication: Sleep disorder
     Dosage: 300 MILLIGRAM, PER DAY (SHE WAS RECEIVING 30 TABLETS/DAY)
     Route: 065
  2. ZOLPIDEM [Suspect]
     Active Substance: ZOLPIDEM TARTRATE
     Dosage: UNK
     Route: 065
  3. QUETIAPINE [Concomitant]
     Active Substance: QUETIAPINE
     Indication: Anxiety disorder
     Dosage: 25 MILLIGRAM PER DAY
     Route: 065
  4. SERTRALINE [Concomitant]
     Active Substance: SERTRALINE HYDROCHLORIDE
     Indication: Anxiety disorder
     Dosage: 50 MILLIGRAM, PER DAY
     Route: 065

REACTIONS (7)
  - Prescription drug used without a prescription [Unknown]
  - Generalised tonic-clonic seizure [Recovered/Resolved]
  - Psychomotor hyperactivity [Recovered/Resolved]
  - Withdrawal syndrome [Recovered/Resolved]
  - Drug dependence [Unknown]
  - Intentional product misuse [Unknown]
  - Intentional overdose [Unknown]
